FAERS Safety Report 15710065 (Version 1)
Quarter: 2018Q4

REPORT INFORMATION
  Report Type: Spontaneous
  Country: DE (occurrence: DE)
  Receive Date: 20181211
  Receipt Date: 20181211
  Transmission Date: 20190205
  Serious: Yes (Other)
  Sender: FDA-Public Use
  Company Number: PHHY2018DE179892

PATIENT
  Age: 77 Year
  Sex: Female

DRUGS (1)
  1. AMOXICLAV 1A PHARMA [Suspect]
     Active Substance: AMOXICILLIN\CLAVULANIC ACID
     Indication: PROPHYLAXIS
     Dosage: UNK UNK, BID
     Route: 065

REACTIONS (2)
  - Malignant neoplasm of unknown primary site [Unknown]
  - Product use in unapproved indication [Unknown]
